FAERS Safety Report 13778285 (Version 1)
Quarter: 2017Q3

REPORT INFORMATION
  Report Type: Spontaneous
  Country: US (occurrence: US)
  Receive Date: 20170721
  Receipt Date: 20170721
  Transmission Date: 20171127
  Serious: No
  Sender: FDA-Public Use
  Company Number: US-ST. RENATUS-2017STR00019

PATIENT
  Age: 46 Year
  Sex: Female

DRUGS (2)
  1. KOVANAZE [Suspect]
     Active Substance: OXYMETAZOLINE HYDROCHLORIDE\TETRACAINE HYDROCHLORIDE
     Dosage: 4 DOSAGE UNITS, ONCE
     Route: 045
     Dates: start: 20170322
  2. VALIUM [Concomitant]
     Active Substance: DIAZEPAM

REACTIONS (3)
  - Drug ineffective [Unknown]
  - Throat irritation [Unknown]
  - Nasal discomfort [Unknown]

NARRATIVE: CASE EVENT DATE: 20170322
